FAERS Safety Report 6444922-9 (Version None)
Quarter: 2009Q4

REPORT INFORMATION
  Report Type: 
  Country: None (occurrence: None)
  Receive Date: 20091117
  Receipt Date: 20091117
  Transmission Date: 20100525
  Serious: Yes (Other)
  Sender: FDA-Public Use
  Company Number: None

PATIENT
  Age: 42 Year
  Sex: Female
  Weight: 68.0396 kg

DRUGS (4)
  1. CYMBALTA [Suspect]
     Indication: FIBROMYALGIA
     Dosage: 60MG QD PO
     Route: 048
  2. CYMBALTA [Suspect]
     Indication: PAIN
     Dosage: 60MG QD PO
     Route: 048
  3. XYZAL [Concomitant]
  4. TOPAMAX [Concomitant]

REACTIONS (1)
  - RESTLESS LEGS SYNDROME [None]
